FAERS Safety Report 15237799 (Version 1)
Quarter: 2018Q3

REPORT INFORMATION
  Report Type: Spontaneous
  Country: US (occurrence: US)
  Receive Date: 20180803
  Receipt Date: 20180803
  Transmission Date: 20181010
  Serious: No
  Sender: FDA-Public Use
  Company Number: US-PFIZER INC-2018311909

PATIENT
  Age: 23 Year
  Sex: Female

DRUGS (1)
  1. GENOTROPIN [Suspect]
     Active Substance: SOMATROPIN
     Dosage: 0.2 MG, 3 DAYS A WEEK
     Dates: start: 20140228

REACTIONS (6)
  - Weight increased [Unknown]
  - Sluggishness [Unknown]
  - Fatigue [Unknown]
  - Headache [Unknown]
  - Serum ferritin decreased [Unknown]
  - Alopecia [Unknown]
